FAERS Safety Report 5291267-9 (Version None)
Quarter: 2007Q2

REPORT INFORMATION
  Report Type: 
  Country: None (occurrence: None)
  Receive Date: 20070409
  Receipt Date: 20070328
  Transmission Date: 20071010
  Serious: Yes (Hospitalization, Other)
  Sender: FDA-Public Use
  Company Number: US-PFIZER INC-2006132867

PATIENT
  Sex: Male

DRUGS (2)
  1. BEXTRA [Suspect]
     Indication: PAIN
     Route: 048
     Dates: start: 20020101, end: 20040606
  2. VIOXX [Suspect]
     Route: 048
     Dates: start: 20020101, end: 20040606

REACTIONS (3)
  - ANXIETY [None]
  - CEREBROVASCULAR ACCIDENT [None]
  - MYOCARDIAL INFARCTION [None]
